FAERS Safety Report 8484573-8 (Version None)
Quarter: 2012Q2

REPORT INFORMATION
  Report Type: 
  Country: None (occurrence: None)
  Receive Date: 20120625
  Receipt Date: 20120614
  Transmission Date: 20120825
  Serious: Yes (Hospitalization)
  Sender: FDA-Public Use
  Company Number: 2012HGS-003741

PATIENT
  Age: 79 Year
  Sex: Female
  Weight: 122.0176 kg

DRUGS (8)
  1. GABAPENTIN [Concomitant]
  2. BENLYSTA [Suspect]
  3. BENLYSTA [Suspect]
     Indication: SYSTEMIC LUPUS ERYTHEMATOSUS
     Dosage: INTRAVENOUS DRIP
     Route: 041
     Dates: start: 20120515
  4. IMURAN [Concomitant]
  5. PLAQUENIL [Concomitant]
  6. PREDNISONE [Concomitant]
  7. METFORMIN HCL [Concomitant]
  8. DIOVAN [Concomitant]

REACTIONS (1)
  - DEEP VEIN THROMBOSIS [None]
